FAERS Safety Report 14713015 (Version 1)
Quarter: 2018Q2

REPORT INFORMATION
  Report Type: Report from Study
  Country: GB (occurrence: GB)
  Receive Date: 20180404
  Receipt Date: 20180404
  Transmission Date: 20180711
  Serious: Yes (Death, Hospitalization)
  Sender: FDA-Public Use
  Company Number: GB-ROCHE-2097938

PATIENT
  Age: 82 Year
  Sex: Male

DRUGS (1)
  1. RITUXIMAB. [Suspect]
     Active Substance: RITUXIMAB
     Indication: RHEUMATOID ARTHRITIS
     Dosage: DATE OF MOST RECENT DOSE PRIOR TO THE EVENT: 03/AUG/2017
     Route: 042
     Dates: start: 20160915

REACTIONS (7)
  - Small intestinal obstruction [Fatal]
  - Anaemia [Fatal]
  - Colon cancer [Fatal]
  - Multiple organ dysfunction syndrome [Fatal]
  - Abdominal sepsis [Fatal]
  - Large intestinal obstruction [Fatal]
  - Rectal cancer [Fatal]

NARRATIVE: CASE EVENT DATE: 20171106
